FAERS Safety Report 14715439 (Version 4)
Quarter: 2018Q4

REPORT INFORMATION
  Report Type: Spontaneous
  Country: TR (occurrence: TR)
  Receive Date: 20180404
  Receipt Date: 20181022
  Transmission Date: 20190204
  Serious: Yes (Death, Life-Threatening, Hospitalization)
  Sender: FDA-Public Use
  Company Number: TR-CELGENEUS-TUR-20180309706

PATIENT
  Age: 73 Year
  Sex: Male
  Weight: 85 kg

DRUGS (8)
  1. AZACITIDINE. [Suspect]
     Active Substance: AZACITIDINE
     Indication: ACUTE MYELOID LEUKAEMIA
     Dosage: 75 MILLIGRAM/SQ. METER
     Route: 058
     Dates: start: 20180221, end: 20180227
  2. AERIUS (EBASTINE) [Concomitant]
     Active Substance: EBASTINE
     Indication: RASH
     Dosage: 5 MILLIGRAM
     Route: 048
     Dates: start: 20180125
  3. CORASPIN [Concomitant]
     Active Substance: ASPIRIN
     Indication: UNEVALUABLE EVENT
     Dosage: 100 MILLIGRAM
     Route: 048
     Dates: start: 2017
  4. AVIL [Concomitant]
     Active Substance: PHENIRAMINE
     Dosage: 45.4 MILLIGRAM
     Route: 041
     Dates: start: 20180221, end: 20180227
  5. I.N.H [Concomitant]
     Indication: ANTIBIOTIC PROPHYLAXIS
     Dosage: 300 MILLIGRAM
     Route: 048
     Dates: start: 20180407
  6. VENETOCLAX. [Concomitant]
     Active Substance: VENETOCLAX
     Indication: ACUTE MYELOID LEUKAEMIA
     Route: 065
  7. AVIL [Concomitant]
     Active Substance: PHENIRAMINE
     Indication: ALLERGY PROPHYLAXIS
     Dosage: 45.4 MILLIGRAM
     Route: 041
     Dates: start: 20180228
  8. DROPIA MET [Concomitant]
     Indication: DIABETES MELLITUS
     Dosage: 865 MILLIGRAM
     Route: 048
     Dates: start: 2004

REACTIONS (3)
  - Pneumonia fungal [Fatal]
  - General physical health deterioration [Recovered/Resolved]
  - Febrile neutropenia [Unknown]

NARRATIVE: CASE EVENT DATE: 20180221
